FAERS Safety Report 10256717 (Version 1)
Quarter: 2014Q2

REPORT INFORMATION
  Report Type: Report from Study
  Country: DE (occurrence: DE)
  Receive Date: 20140624
  Receipt Date: 20140624
  Transmission Date: 20141212
  Serious: Yes (Hospitalization)
  Sender: FDA-Public Use
  Company Number: DE-JNJFOC-20140211145

PATIENT
  Age: 61 Year
  Sex: 0

DRUGS (10)
  1. RIVAROXABAN [Suspect]
     Indication: DEEP VEIN THROMBOSIS
     Route: 048
     Dates: start: 20140111, end: 20140207
  2. RIVAROXABAN [Suspect]
     Indication: DEEP VEIN THROMBOSIS
     Route: 048
     Dates: start: 20131220, end: 20140110
  3. RIVAROXABAN [Suspect]
     Indication: THROMBOSIS PROPHYLAXIS
     Route: 048
     Dates: start: 20131220, end: 20140110
  4. RIVAROXABAN [Suspect]
     Indication: THROMBOSIS PROPHYLAXIS
     Route: 048
     Dates: start: 20140111, end: 20140207
  5. FENTANYL [Concomitant]
     Route: 065
     Dates: start: 2006
  6. METOPROLOL SUCCINATE [Concomitant]
     Route: 065
     Dates: start: 2007
  7. L-THYROXIN [Concomitant]
     Route: 065
     Dates: start: 201309
  8. RAMILICH [Concomitant]
     Route: 065
     Dates: start: 2007
  9. ASS [Concomitant]
     Route: 048
     Dates: start: 2006
  10. INEGY [Concomitant]
     Route: 065
     Dates: start: 2007

REACTIONS (1)
  - Deep vein thrombosis [Not Recovered/Not Resolved]
